FAERS Safety Report 9745376 (Version 1)
Quarter: 2013Q4

REPORT INFORMATION
  Report Type: Report from Study
  Country: MX (occurrence: MX)
  Receive Date: 20131211
  Receipt Date: 20131211
  Transmission Date: 20140711
  Serious: Yes (Hospitalization, Other)
  Sender: FDA-Public Use
  Company Number: PHHY2013MX143034

PATIENT
  Age: 85 Year
  Sex: Female
  Weight: 65.5 kg

DRUGS (3)
  1. EXFORGE HCT [Suspect]
     Indication: HYPERTENSION
     Dosage: 1 DF, DAILY(VALS 160 MG, AMO 5 MG, 12.5 MG HCTZ)
     Route: 048
     Dates: start: 201009, end: 201201
  2. EXFORGE HCT [Suspect]
     Dosage: 0.5 DF, DAILY(VALS 160 MG, AMO 5 MG, 12.5 MG HCTZ)
     Route: 048
     Dates: start: 201201
  3. ASPIRIN PROTECT [Concomitant]
     Indication: PROPHYLAXIS
     Dosage: 1 DF, DAILY
     Dates: start: 2003

REACTIONS (9)
  - Colitis [Not Recovered/Not Resolved]
  - Cerebral hypoperfusion [Recovered/Resolved]
  - Diabetes mellitus [Not Recovered/Not Resolved]
  - Blood glucose increased [Recovered/Resolved]
  - Weight decreased [Recovered/Resolved]
  - Dizziness [Recovered/Resolved]
  - Headache [Recovered/Resolved]
  - Fatigue [Recovered/Resolved]
  - Wrong technique in drug usage process [Not Recovered/Not Resolved]
